FAERS Safety Report 17205788 (Version 2)
Quarter: 2022Q4

REPORT INFORMATION
  Report Type: Spontaneous
  Country: US (occurrence: US)
  Receive Date: 20191227
  Receipt Date: 20221202
  Transmission Date: 20230113
  Serious: Yes (Life-Threatening, Hospitalization, Other)
  Sender: FDA-Public Use
  Company Number: None

PATIENT
  Age: 67 Year
  Sex: Female

DRUGS (3)
  1. PREDNISOLONE [Suspect]
     Active Substance: PREDNISOLONE
     Indication: Product used for unknown indication
     Dosage: UNK
     Route: 048
  2. METHYLPREDNISOLONE ACETATE [Suspect]
     Active Substance: METHYLPREDNISOLONE ACETATE
     Indication: Bursitis
     Dosage: UNK
     Route: 030
  3. LIDOCAINE [Concomitant]
     Active Substance: LIDOCAINE
     Indication: Bursitis
     Dosage: UNK
     Route: 030

REACTIONS (9)
  - Angioedema [Unknown]
  - Periorbital oedema [Unknown]
  - Condition aggravated [Unknown]
  - Syncope [Unknown]
  - Vomiting [Unknown]
  - Hypotension [Unknown]
  - Diarrhoea [Unknown]
  - Drug hypersensitivity [Unknown]
  - Anaphylactic reaction [Unknown]
